FAERS Safety Report 5663785-2 (Version None)
Quarter: 2008Q1

REPORT INFORMATION
  Report Type: 
  Country: None (occurrence: None)
  Receive Date: 20080311
  Receipt Date: 20080226
  Transmission Date: 20080703
  Serious: Yes (Hospitalization)
  Sender: FDA-Public Use
  Company Number: 024595

PATIENT
  Age: 35 Year
  Sex: Male
  Weight: 65 kg

DRUGS (20)
  1. AZITHROMYCIN [Suspect]
     Indication: MYCOBACTERIUM AVIUM COMPLEX INFECTION
     Dosage: 500 MG, QD
     Dates: start: 19970601, end: 19971001
  2. AZITHROMYCIN [Suspect]
     Indication: MYCOBACTERIUM KANSASII INFECTION
     Dosage: 500 MG, QD
     Dates: start: 19970601, end: 19971001
  3. ETHAMBUTOL HYDROCHLORIDE [Concomitant]
  4. ISONIAZID [Concomitant]
  5. RIFABUTIN (RIFABUTIN) [Concomitant]
  6. CIPROFLOXACIN [Concomitant]
  7. SULFAMETHOXAZOLE AND TRIMETHOPRIM [Concomitant]
  8. FLUCONAZOLE [Concomitant]
  9. ZIDOVUDINE [Concomitant]
  10. LAMIVUDINE [Concomitant]
  11. INDINIVIR SULFATE [Concomitant]
  12. METHADONE HCL [Concomitant]
  13. MORPHINE [Concomitant]
  14. PSEUDOEPHEDRINE HCL [Concomitant]
  15. DIPHENHYDRAMINE HCL [Concomitant]
  16. MEGESTROL ACETATE [Concomitant]
  17. TRAZODONE HCL [Concomitant]
  18. SORBITOL (SORBITOL) [Concomitant]
  19. ALBUTEROL [Concomitant]
  20. IPRATROPIUM BROMIDE [Concomitant]

REACTIONS (4)
  - DEAFNESS NEUROSENSORY [None]
  - DIZZINESS [None]
  - OTOTOXICITY [None]
  - TINNITUS [None]
